FAERS Safety Report 5922584-4 (Version None)
Quarter: 2008Q4

REPORT INFORMATION
  Report Type: 
  Country: None (occurrence: None)
  Receive Date: 20081017
  Receipt Date: 20081009
  Transmission Date: 20090506
  Serious: Yes (Death, Hospitalization, Other)
  Sender: FDA-Public Use
  Company Number: PHNU2007DE02365

PATIENT
  Sex: Male
  Weight: 87 kg

DRUGS (15)
  1. ZOMETA [Suspect]
     Indication: METASTASES TO BONE
     Dosage: 4 MG/EVERY 4 WEEKS
     Route: 065
     Dates: start: 20070306, end: 20071201
  2. DIOVAN HCT [Concomitant]
     Dosage: 160 MG VALSARTAN; 12.5 MG HCT
     Route: 048
  3. AMLODIPINE [Concomitant]
     Dosage: 10 MG, UNK
     Route: 048
  4. METOPROLOL TARTRATE [Concomitant]
     Dosage: 50 MG, UNK
     Route: 048
  5. LEVOTHYROXINE SODIUM [Concomitant]
     Dosage: 200 UG
     Route: 048
  6. DEXAMETHASONE [Concomitant]
     Dosage: 1 MG, QD
     Route: 065
  7. VOLTAREN RESINAT ^NOVARTIS^ [Concomitant]
     Dosage: 1 TABLET DAILY
     Route: 048
  8. NEXIUM [Concomitant]
     Dosage: 40 MG, QD
     Route: 065
  9. MOVICOL [Concomitant]
     Route: 065
  10. NOVAMINE [Concomitant]
     Dosage: 120 DROPS DAILY
     Route: 048
  11. DURAGESIC-100 [Concomitant]
     Dosage: 50 UG/H REPLACED EVERY 3 DAYS
     Route: 065
  12. AMITRIPTYLINE HCL [Concomitant]
     Route: 065
  13. OXYCODONE HCL [Concomitant]
     Route: 065
  14. NALOXONE [Concomitant]
     Route: 065
  15. VINBLASTINE SULFATE [Concomitant]
     Dosage: 6 MG/QM
     Dates: start: 20070906, end: 20071018

REACTIONS (10)
  - BACK PAIN [None]
  - BONE LESION [None]
  - BONE PAIN [None]
  - GENERAL PHYSICAL HEALTH DETERIORATION [None]
  - HAEMATOMA [None]
  - MALIGNANT NEOPLASM PROGRESSION [None]
  - METASTASES TO BONE [None]
  - OSTEONECROSIS [None]
  - PAIN IN EXTREMITY [None]
  - PARAESTHESIA [None]
